FAERS Safety Report 24630864 (Version 2)
Quarter: 2025Q4

REPORT INFORMATION
  Report Type: Spontaneous
  Country: US (occurrence: US)
  Receive Date: 20241118
  Receipt Date: 20251024
  Transmission Date: 20260117
  Serious: No
  Sender: SECURA BIO
  Company Number: US-SECURA BIO, INC.-2024-SECUR-US000054

PATIENT

DRUGS (1)
  1. COPIKTRA [Suspect]
     Active Substance: DUVELISIB
     Indication: Peripheral T-cell lymphoma unspecified
     Dosage: 75 MG, BID
     Route: 048

REACTIONS (1)
  - Off label use [Unknown]
